FAERS Safety Report 18078719 (Version 2)
Quarter: 2020Q3

REPORT INFORMATION
  Report Type: Report from Study
  Country: DE (occurrence: DE)
  Receive Date: 20200728
  Receipt Date: 20200729
  Transmission Date: 20201103
  Serious: Yes (Hospitalization)
  Sender: FDA-Public Use
  Company Number: DE-ROCHE-2647098

PATIENT
  Age: 69 Year
  Sex: Female
  Weight: 117 kg

DRUGS (36)
  1. FENISTIL [Concomitant]
     Active Substance: DIMETHINDENE
     Dosage: CYCLE 1 DAY 15
     Route: 042
     Dates: start: 20200603, end: 20200603
  2. PREDNISOLON [Concomitant]
     Active Substance: PREDNISOLONE
     Dosage: CYCLE 1 DAY 1
     Route: 042
     Dates: start: 20200520, end: 20200520
  3. PARACETAMOL [Concomitant]
     Active Substance: ACETAMINOPHEN
     Dosage: CYCLE1 DAY 8
     Route: 048
     Dates: start: 20200527, end: 20200527
  4. GRANISETRON [Concomitant]
     Active Substance: GRANISETRON
     Indication: PREMEDICATION
     Dosage: CYCLE 1 DAY 1
     Route: 042
     Dates: start: 20200521, end: 20200521
  5. DEXAMETHASONE. [Concomitant]
     Active Substance: DEXAMETHASONE
     Dosage: CYCLE 2 DAY 1
     Route: 048
     Dates: start: 20200625, end: 20200626
  6. OBINUTUZUMAB. [Suspect]
     Active Substance: OBINUTUZUMAB
     Indication: B-CELL LYMPHOMA
     Dosage: ON DAY 1, 8 AND 15 DURING CYCLE 1?ON DAY 1 OF SUBSEQUENT CYCLES, FOR 6?8 CYCLES.?DATE OF MOST RECENT
     Route: 042
     Dates: start: 20200520
  7. EDOXABAN [Concomitant]
     Active Substance: EDOXABAN TOSYLATE
     Indication: ATRIAL FIBRILLATION
     Dates: start: 20200515
  8. ALFASON CRELO [Concomitant]
     Active Substance: HYDROCORTISONE BUTYRATE
     Indication: RASH
     Dates: start: 20200610
  9. PARACETAMOL [Concomitant]
     Active Substance: ACETAMINOPHEN
     Indication: PREMEDICATION
     Dosage: CYCLE1 DAY 1
     Route: 048
     Dates: start: 20200520, end: 20200520
  10. BENDAMUSTINE [Suspect]
     Active Substance: BENDAMUSTINE
     Indication: B-CELL LYMPHOMA
     Dosage: ON DAYS 1 AND 2 FOR CYCLES 1?6?DATE OF MOST RECENT 180 MG DOSE OF BENDAMUSTINE PRIOR TO AE/SAE ONSET
     Route: 042
     Dates: start: 20200521
  11. VALSARTAN. [Concomitant]
     Active Substance: VALSARTAN
     Indication: HYPERTENSION
     Dates: end: 20200630
  12. PREDNISOLON [Concomitant]
     Active Substance: PREDNISOLONE
     Indication: PREMEDICATION
     Dates: start: 20200516, end: 20200519
  13. NACL [Concomitant]
     Active Substance: SODIUM CHLORIDE
     Dosage: CYCLE 1 DAY 8
     Route: 042
     Dates: start: 20200527, end: 20200527
  14. NACL [Concomitant]
     Active Substance: SODIUM CHLORIDE
     Dosage: CYCLE 2 DAY 1
     Route: 042
     Dates: start: 20200624, end: 20200624
  15. METFORMIN [Concomitant]
     Active Substance: METFORMIN HYDROCHLORIDE
     Indication: DIABETES MELLITUS
  16. MAGNESIUM [Concomitant]
     Active Substance: MAGNESIUM
  17. PREDNISOLON [Concomitant]
     Active Substance: PREDNISOLONE
     Dosage: CYCLE 1 DAY 8
     Route: 042
     Dates: start: 20200527, end: 20200527
  18. PARACETAMOL [Concomitant]
     Active Substance: ACETAMINOPHEN
     Dosage: CYCLE1 DAY 15
     Route: 048
     Dates: start: 20200603, end: 20200603
  19. NACL [Concomitant]
     Active Substance: SODIUM CHLORIDE
     Indication: PREMEDICATION
     Dosage: CYCLE 1 DAY 1
     Route: 042
     Dates: start: 20200520, end: 20200520
  20. FENISTIL [Concomitant]
     Active Substance: DIMETHINDENE
     Dosage: CYCLE 1 DAY 8
     Route: 042
     Dates: start: 20200527, end: 20200527
  21. GRANISETRON [Concomitant]
     Active Substance: GRANISETRON
     Dosage: CYCLE 2 DAY 1
     Route: 042
     Dates: start: 20200624, end: 20200624
  22. DEXAMETHASONE. [Concomitant]
     Active Substance: DEXAMETHASONE
     Dosage: CYCLE 1 DAY 1
     Route: 048
     Dates: start: 20200521, end: 20200522
  23. LIRAGLUTIDE [Concomitant]
     Active Substance: LIRAGLUTIDE
     Indication: DIABETES MELLITUS
  24. TRIAMCINOLONE [Concomitant]
     Active Substance: TRIAMCINOLONE
     Indication: RASH
     Dates: start: 20200610, end: 20200622
  25. FENISTIL [Concomitant]
     Active Substance: DIMETHINDENE
     Dosage: CYCLE 2 DAY 1
     Route: 042
     Dates: start: 20200624, end: 20200624
  26. PARACETAMOL [Concomitant]
     Active Substance: ACETAMINOPHEN
     Dosage: CYCLE 2 DAY 1
     Route: 048
     Dates: start: 20200520, end: 20200520
  27. AMLODIPIN [Concomitant]
     Active Substance: AMLODIPINE BESYLATE
     Indication: HYPERTENSION
     Dates: end: 20200630
  28. BASISCREME DAC [Concomitant]
     Indication: RASH
     Dates: start: 20200610, end: 20200622
  29. FENISTIL [Concomitant]
     Active Substance: DIMETHINDENE
     Indication: PREMEDICATION
     Dosage: CYCLE 1,  DAY 1
     Route: 042
     Dates: start: 20200520, end: 20200520
  30. PREDNISOLON [Concomitant]
     Active Substance: PREDNISOLONE
     Dosage: CYCLE 1 DAY 15
     Route: 042
     Dates: start: 20200603, end: 20200603
  31. NACL [Concomitant]
     Active Substance: SODIUM CHLORIDE
     Dosage: CYCLE 1 DAY 15
     Route: 042
     Dates: start: 20200603, end: 20200603
  32. GRANISETRON [Concomitant]
     Active Substance: GRANISETRON
     Dosage: CYCLE 2 DAY 1
     Route: 042
     Dates: start: 20200625, end: 20200625
  33. DEXAMETHASONE. [Concomitant]
     Active Substance: DEXAMETHASONE
     Indication: PREMEDICATION
     Dosage: CYCLE 1 DAY 1
     Route: 048
     Dates: start: 20200521, end: 20200522
  34. SYMBICORT [Concomitant]
     Active Substance: BUDESONIDE\FORMOTEROL FUMARATE DIHYDRATE
     Indication: ASTHMA
  35. THESIT [Concomitant]
     Indication: RASH
     Dates: start: 20200610, end: 20200622
  36. PREDNISOLON [Concomitant]
     Active Substance: PREDNISOLONE
     Dosage: CYCLE 2 DAY 1
     Route: 042
     Dates: start: 20200624, end: 20200624

REACTIONS (1)
  - Atrial fibrillation [Not Recovered/Not Resolved]

NARRATIVE: CASE EVENT DATE: 20200720
